FAERS Safety Report 20168310 (Version 1)
Quarter: 2021Q4

REPORT INFORMATION
  Report Type: Spontaneous
  Country: US (occurrence: None)
  Receive Date: 20211210
  Receipt Date: 20211210
  Transmission Date: 20220303
  Serious: Yes (Hospitalization, Other)
  Sender: FDA-Public Use
  Company Number: US-MLMSERVICE-20211201-3238668-1

PATIENT
  Age: 27 Year
  Sex: Female

DRUGS (1)
  1. OCTREOTIDE [Suspect]
     Active Substance: OCTREOTIDE
     Indication: Glucagonoma
     Route: 065

REACTIONS (2)
  - Acute hepatic failure [Recovering/Resolving]
  - Renal failure [Recovering/Resolving]
